FAERS Safety Report 4950651-0 (Version None)
Quarter: 2006Q1

REPORT INFORMATION
  Report Type: 
  Country: None (occurrence: None)
  Receive Date: 20060321
  Receipt Date: 20060321
  Transmission Date: 20060701
  Serious: No
  Sender: FDA-Public Use
  Company Number: None

PATIENT
  Age: 52 Year
  Sex: Female
  Weight: 86.1834 kg

DRUGS (2)
  1. LEVAQUIN [Suspect]
     Indication: SINUS DISORDER
     Dates: start: 20060310, end: 20060310
  2. LEVAQUIN [Suspect]
     Indication: SKIN DISORDER
     Dates: start: 20060310, end: 20060310

REACTIONS (12)
  - ABDOMINAL PAIN UPPER [None]
  - ABNORMAL DREAMS [None]
  - ARTHRALGIA [None]
  - BACK PAIN [None]
  - DYSGEUSIA [None]
  - FEAR [None]
  - GASTROINTESTINAL PAIN [None]
  - HOT FLUSH [None]
  - MUSCLE SPASMS [None]
  - PAIN [None]
  - SHOULDER PAIN [None]
  - TENDON DISORDER [None]
